FAERS Safety Report 9321891 (Version 2)
Quarter: 2013Q2

REPORT INFORMATION
  Report Type: Spontaneous
  Country: US (occurrence: US)
  Receive Date: 20130531
  Receipt Date: 20130621
  Transmission Date: 20140414
  Serious: Yes (Other)
  Sender: FDA-Public Use
  Company Number: US-TEVA-408638USA

PATIENT
  Age: 58 Year
  Sex: Female
  Weight: 72.64 kg

DRUGS (2)
  1. ACTIQ [Suspect]
     Indication: PAIN
     Route: 048
     Dates: start: 2000
  2. PERCOCET [Concomitant]
     Indication: PAIN

REACTIONS (3)
  - Abasia [Not Recovered/Not Resolved]
  - Pain [Not Recovered/Not Resolved]
  - Off label use [Unknown]
